FAERS Safety Report 14221840 (Version 1)
Quarter: 2017Q4

REPORT INFORMATION
  Report Type: Report from Study
  Country: None (occurrence: CO)
  Receive Date: 20171123
  Receipt Date: 20171123
  Transmission Date: 20180321
  Serious: Yes (Hospitalization)
  Sender: FDA-Public Use
  Company Number: CO-ABBVIE-17K-036-2173471-00

PATIENT
  Age: 34 Year
  Sex: Male
  Weight: 73 kg

DRUGS (4)
  1. MESALAZINE [Concomitant]
     Active Substance: MESALAMINE
     Indication: PRODUCT USED FOR UNKNOWN INDICATION
  2. HUMIRA [Suspect]
     Active Substance: ADALIMUMAB
     Indication: COLITIS ULCERATIVE
     Route: 058
     Dates: start: 20160427
  3. PREDNISOLONE. [Concomitant]
     Active Substance: PREDNISOLONE
     Indication: PRODUCT USED FOR UNKNOWN INDICATION
  4. TRIMEBUTINE [Concomitant]
     Active Substance: TRIMEBUTINE
     Indication: PRODUCT USED FOR UNKNOWN INDICATION

REACTIONS (1)
  - Haematochezia [Recovered/Resolved]

NARRATIVE: CASE EVENT DATE: 20171105
